FAERS Safety Report 9384684 (Version 1)
Quarter: 2013Q3

REPORT INFORMATION
  Report Type: Spontaneous
  Country: US (occurrence: US)
  Receive Date: 20130705
  Receipt Date: 20130705
  Transmission Date: 20140515
  Serious: No
  Sender: FDA-Public Use
  Company Number: US-BAYER-2013-081885

PATIENT
  Sex: Female
  Weight: 70.3 kg

DRUGS (6)
  1. BETASERON [Suspect]
     Dosage: 0.3 MG, UNK
  2. COPAXONE [Concomitant]
     Dosage: 20 MG/ML, UNK
  3. MULTIVITAMIN [Concomitant]
  4. KLONOPIN [Concomitant]
     Dosage: 0.5 MG, UNK
  5. SYNTHROID [Concomitant]
     Dosage: 25 ?G, UNK
  6. SERTRALINE [Concomitant]
     Dosage: 25 MG, UNK

REACTIONS (1)
  - White blood cell count increased [None]
